FAERS Safety Report 11916211 (Version 1)
Quarter: 2016Q1

REPORT INFORMATION
  Report Type: Spontaneous
  Country: IN (occurrence: IN)
  Receive Date: 20160114
  Receipt Date: 20160114
  Transmission Date: 20160526
  Serious: Yes (Death, Other)
  Sender: FDA-Public Use
  Company Number: IN-MYLANLABS-2016M1001828

PATIENT

DRUGS (4)
  1. RIFAMPICIN [Suspect]
     Active Substance: RIFAMPIN
     Indication: CUTANEOUS TUBERCULOSIS
     Route: 064
  2. ETHAMBUTOL [Suspect]
     Active Substance: ETHAMBUTOL HYDROCHLORIDE
     Indication: CUTANEOUS TUBERCULOSIS
     Route: 064
  3. ISONIAZID. [Suspect]
     Active Substance: ISONIAZID
     Indication: CUTANEOUS TUBERCULOSIS
     Route: 064
  4. PYRAZINAMIDE. [Suspect]
     Active Substance: PYRAZINAMIDE
     Indication: CUTANEOUS TUBERCULOSIS
     Route: 064

REACTIONS (3)
  - Respiratory tract infection [Fatal]
  - Foetal exposure during pregnancy [Recovered/Resolved]
  - Meconium aspiration syndrome [Fatal]
